FAERS Safety Report 7695897 (Version 4)
Quarter: 2014Q2

REPORT INFORMATION
  Report Type: Spontaneous
  Country: US (occurrence: US)
  Receive Date: 20101207
  Receipt Date: 20140506
  Transmission Date: 20141212
  Serious: Yes (Hospitalization, Other)
  Sender: FDA-Public Use
  Company Number: US-BAYER-2010-001651

PATIENT
  Age: 43 Year
  Sex: Female
  Weight: 57.14 kg

DRUGS (3)
  1. YASMIN [Suspect]
     Indication: ACNE
     Dosage: UNK
     Dates: start: 2000, end: 20080514
  2. PERCOCET [Concomitant]
  3. FLEXERIL [Concomitant]

REACTIONS (4)
  - Deep vein thrombosis [Unknown]
  - Thrombosis [None]
  - Deep vein thrombosis [None]
  - Pelvic venous thrombosis [None]
